FAERS Safety Report 20591243 (Version 2)
Quarter: 2022Q2

REPORT INFORMATION
  Report Type: Spontaneous
  Country: US (occurrence: US)
  Receive Date: 20220314
  Receipt Date: 20220428
  Transmission Date: 20220721
  Serious: Yes (Other)
  Sender: FDA-Public Use
  Company Number: US-NOVARTISPH-NVSC2022US056703

PATIENT
  Age: 5 Year

DRUGS (5)
  1. FILGRASTIM [Suspect]
     Active Substance: FILGRASTIM
     Indication: Neutropenia
     Dosage: 5 U/KG, QD (DAY 5)
     Route: 065
  2. DECITABINE [Suspect]
     Active Substance: DECITABINE
     Indication: Acute myeloid leukaemia recurrent
     Dosage: 10 MG/M2
     Route: 065
  3. FLUDARABINE PHOSPHATE [Suspect]
     Active Substance: FLUDARABINE PHOSPHATE
     Indication: Acute myeloid leukaemia recurrent
     Dosage: 30 MG/M2 (DAYS 6 TO 10)
     Route: 065
  4. CYTARABINE [Suspect]
     Active Substance: CYTARABINE
     Indication: Acute myeloid leukaemia recurrent
     Dosage: 2000 MG/M2 (DAYS 6 TO 10)
     Route: 065
  5. VORINOSTAT [Suspect]
     Active Substance: VORINOSTAT
     Indication: Acute myeloid leukaemia recurrent
     Dosage: 180 MG/M2, QD
     Route: 065

REACTIONS (4)
  - Acute myeloid leukaemia [Unknown]
  - Malignant neoplasm progression [Unknown]
  - Product use issue [Unknown]
  - Product use in unapproved indication [Unknown]
